FAERS Safety Report 6839627-6 (Version None)
Quarter: 2010Q3

REPORT INFORMATION
  Report Type: 
  Country: None (occurrence: None)
  Receive Date: 20100714
  Receipt Date: 20100707
  Transmission Date: 20110219
  Serious: Yes (Other)
  Sender: FDA-Public Use
  Company Number: US-BAYER-201032261GPV

PATIENT

DRUGS (2)
  1. ASPIRIN [Suspect]
     Indication: ANTIPLATELET THERAPY
  2. AGGRENOX [Suspect]
     Indication: ANTIPLATELET THERAPY

REACTIONS (1)
  - GASTROINTESTINAL HAEMORRHAGE [None]
